FAERS Safety Report 7556252-2 (Version None)
Quarter: 2011Q2

REPORT INFORMATION
  Report Type: 
  Country: None (occurrence: None)
  Receive Date: 20110620
  Receipt Date: 20110614
  Transmission Date: 20111010
  Serious: Yes (Hospitalization)
  Sender: FDA-Public Use
  Company Number: US-PFIZER INC-2011132098

PATIENT
  Sex: Male
  Weight: 74.4 kg

DRUGS (9)
  1. LEVOTHROID [Concomitant]
     Dosage: 100 MCG
     Route: 048
  2. LIPITOR [Concomitant]
     Dosage: 10 MG, UNK
     Route: 048
  3. ONDANSETRON [Concomitant]
     Dosage: 4 MG, UNK
     Route: 048
  4. FENTANYL [Concomitant]
     Dosage: 50 MCG/HR TD
  5. SUTENT [Suspect]
     Dosage: 50 MG, 1X/DAY
     Route: 048
  6. GAS-X [Concomitant]
     Dosage: 125 MG, UNK
     Route: 048
  7. LIOTHYRONINE [Concomitant]
     Dosage: 25 MCG OT
  8. LIOTHYRONINE [Concomitant]
     Dosage: 25 MCG
     Route: 048
  9. CLONIDINE [Concomitant]
     Dosage: 0.1/24HR TD

REACTIONS (2)
  - DIARRHOEA [None]
  - RASH [None]
